FAERS Safety Report 12818740 (Version 2)
Quarter: 2016Q4

REPORT INFORMATION
  Report Type: Report from Study
  Country: US (occurrence: US)
  Receive Date: 20161006
  Receipt Date: 20161017
  Transmission Date: 20170207
  Serious: No
  Sender: FDA-Public Use
  Company Number: US-B.I. PHARMACEUTICALS,INC./RIDGEFIELD-2016-BI-63332BP

PATIENT
  Sex: Female

DRUGS (3)
  1. METFORMIN [Concomitant]
     Active Substance: METFORMIN HYDROCHLORIDE
     Indication: PRODUCT USED FOR UNKNOWN INDICATION
     Route: 065
  2. GLYXAMBI [Suspect]
     Active Substance: EMPAGLIFLOZIN\LINAGLIPTIN
     Indication: PRODUCT USED FOR UNKNOWN INDICATION
     Dosage: STRENGTH: 25 MG/5 MG
     Route: 048
     Dates: start: 2015
  3. HYRDOCODEINE [Concomitant]
     Indication: PAIN
     Route: 065

REACTIONS (4)
  - Dysarthria [Not Recovered/Not Resolved]
  - Dizziness [Unknown]
  - Balance disorder [Not Recovered/Not Resolved]
  - Ligament rupture [Recovered/Resolved]

NARRATIVE: CASE EVENT DATE: 201604
